FAERS Safety Report 14242331 (Version 1)
Quarter: 2017Q4

REPORT INFORMATION
  Report Type: Spontaneous
  Country: CA (occurrence: CA)
  Receive Date: 20171130
  Receipt Date: 20171130
  Transmission Date: 20180321
  Serious: Yes (Other)
  Sender: FDA-Public Use
  Company Number: None

PATIENT
  Sex: Female
  Weight: 77.4 kg

DRUGS (14)
  1. CRESTOR [Concomitant]
     Active Substance: ROSUVASTATIN CALCIUM
  2. VITAMIN D [Concomitant]
     Active Substance: CHOLECALCIFEROL
  3. TURMERIC [Concomitant]
     Active Substance: HERBALS\TURMERIC
  4. ADCIRCA [Concomitant]
     Active Substance: TADALAFIL
  5. CALCIUM CITRATE PLUS VIT D3 [Concomitant]
  6. TRACLEER [Suspect]
     Active Substance: BOSENTAN
     Indication: PULMONARY ARTERIAL HYPERTENSION
     Dosage: ?          QUANTITY:56 TABLET(S);?
     Route: 048
     Dates: start: 20170601, end: 20170830
  7. OXYGEN. [Concomitant]
     Active Substance: OXYGEN
  8. PANTOPRAZOLE [Concomitant]
     Active Substance: PANTOPRAZOLE
  9. ELTROXIN [Concomitant]
     Active Substance: LEVOTHYROXINE
  10. MULTIVITAMIN [Concomitant]
     Active Substance: VITAMINS
  11. LASIX [Concomitant]
     Active Substance: FUROSEMIDE
  12. VITAMIN C [Concomitant]
     Active Substance: ASCORBIC ACID
  13. OMEGA 3 [Concomitant]
     Active Substance: OMEGA-3 FATTY ACIDS
  14. VITAMIN B12 [Concomitant]
     Active Substance: CYANOCOBALAMIN

REACTIONS (2)
  - Cataract [None]
  - Vision blurred [None]

NARRATIVE: CASE EVENT DATE: 20170830
